FAERS Safety Report 4535833-4 (Version None)
Quarter: 2004Q4

REPORT INFORMATION
  Report Type: 
  Country: None (occurrence: None)
  Receive Date: 20041223
  Receipt Date: 20040413
  Transmission Date: 20050328
  Serious: No
  Sender: FDA-Public Use
  Company Number: US-GLAXOSMITHKLINE-A0506934A

PATIENT
  Age: 61 Year
  Sex: Male

DRUGS (4)
  1. FLONASE [Suspect]
     Indication: NASAL TURBINATE HYPERTROPHY
     Dosage: 4SPR PER DAY
     Route: 045
     Dates: start: 20040211, end: 20040402
  2. ZOCOR [Concomitant]
  3. FOLIC ACID [Concomitant]
  4. UNSPECIFIED MEDICATION [Concomitant]

REACTIONS (1)
  - AGEUSIA [None]
